FAERS Safety Report 16581467 (Version 1)
Quarter: 2019Q3

REPORT INFORMATION
  Report Type: Report from Study
  Country: BR (occurrence: BR)
  Receive Date: 20190716
  Receipt Date: 20190716
  Transmission Date: 20191004
  Serious: Yes (Other)
  Sender: FDA-Public Use
  Company Number: BR-ELI_LILLY_AND_COMPANY-BR201906014829

PATIENT
  Sex: Female

DRUGS (10)
  1. INSULIN GLARGINE [Suspect]
     Active Substance: INSULIN GLARGINE
     Indication: DIABETES MELLITUS
     Dosage: 22 INTERNATIONAL UNIT, DAILY
     Route: 065
     Dates: start: 201806, end: 201904
  2. HUMULIN R [Suspect]
     Active Substance: INSULIN HUMAN
     Dosage: 10 INTERNATIONAL UNIT, EACH EVENING
     Route: 065
     Dates: start: 201806, end: 201904
  3. HUMULIN N [Suspect]
     Active Substance: INSULIN HUMAN
     Indication: DIABETES MELLITUS
     Dosage: UNK, UNKNOWN
     Route: 065
     Dates: start: 201806
  4. HUMULIN R [Suspect]
     Active Substance: INSULIN HUMAN
     Dosage: 8 UNK, EACH MORNING
     Route: 065
     Dates: start: 201904
  5. HUMULIN R [Suspect]
     Active Substance: INSULIN HUMAN
     Dosage: 8 UNK, EACH EVENING
     Route: 065
     Dates: start: 201904
  6. HUMULIN R [Suspect]
     Active Substance: INSULIN HUMAN
     Indication: DIABETES MELLITUS
     Dosage: 10 INTERNATIONAL UNIT, EACH MORNING
     Route: 065
     Dates: start: 201806, end: 201904
  7. INSULIN GLARGINE [Suspect]
     Active Substance: INSULIN GLARGINE
     Dosage: 24 INTERNATIONAL UNIT, EACH MORNING
     Route: 065
     Dates: start: 201904
  8. HUMULIN R [Suspect]
     Active Substance: INSULIN HUMAN
     Dosage: 6 INTERNATIONAL UNIT, LUNCH TIME
     Route: 065
     Dates: start: 201904
  9. GLIFAGE [Concomitant]
     Active Substance: METFORMIN HYDROCHLORIDE
     Indication: PRODUCT USED FOR UNKNOWN INDICATION
     Dosage: UNK, UNKNOWN
     Route: 065
  10. HUMULIN R [Suspect]
     Active Substance: INSULIN HUMAN
     Dosage: 8 INTERNATIONAL UNIT, LUNCH TIME
     Route: 065
     Dates: start: 201806, end: 201904

REACTIONS (8)
  - Blindness [Unknown]
  - Alopecia [Unknown]
  - Blood glucose increased [Unknown]
  - Diabetic coma [Unknown]
  - Product storage error [Recovered/Resolved]
  - Cerebrovascular accident [Unknown]
  - Blood glucose increased [Unknown]
  - Injection site erythema [Unknown]

NARRATIVE: CASE EVENT DATE: 20181012
